FAERS Safety Report 22766164 (Version 6)
Quarter: 2023Q4

REPORT INFORMATION
  Report Type: Spontaneous
  Country: US (occurrence: US)
  Receive Date: 20230731
  Receipt Date: 20231120
  Transmission Date: 20240110
  Serious: No
  Sender: FDA-Public Use
  Company Number: US-PFIZER INC-202300259540

PATIENT
  Age: 8 Year
  Sex: Male
  Weight: 31.75 kg

DRUGS (3)
  1. GENOTROPIN [Suspect]
     Active Substance: SOMATROPIN
     Indication: Hyperpituitarism
     Dosage: 0.4 MG, 1X/DAY
     Dates: start: 2019
  2. GENOTROPIN [Suspect]
     Active Substance: SOMATROPIN
     Dosage: 0.4 MG
  3. LEVOTHYROXINE SODIUM [Concomitant]
     Active Substance: LEVOTHYROXINE SODIUM
     Indication: Thyroid disorder
     Dosage: 62.5 (UNKNOWN UNIT), 1X/DAY
     Route: 048

REACTIONS (5)
  - Poor quality device used [Unknown]
  - Device physical property issue [Unknown]
  - Device malfunction [Unknown]
  - Device leakage [Unknown]
  - Off label use [Unknown]
